FAERS Safety Report 11694028 (Version 1)
Quarter: 2015Q4

REPORT INFORMATION
  Report Type: Spontaneous
  Country: CH (occurrence: CH)
  Receive Date: 20151103
  Receipt Date: 20151103
  Transmission Date: 20160304
  Serious: Yes (Other)
  Sender: FDA-Public Use
  Company Number: CH-TEVA-604034ISR

PATIENT
  Sex: Male
  Weight: 3.09 kg

DRUGS (7)
  1. SANALEPSI N [Suspect]
     Active Substance: DOXYLAMINE SUCCINATE
     Dosage: 20 DOSAGE FORMS DAILY; AS NEEDED
     Route: 064
  2. UVAMIN RETARD [Suspect]
     Active Substance: NITROFURANTOIN
     Indication: URINARY TRACT INFECTION
     Dosage: 200 MILLIGRAM DAILY;
     Route: 064
     Dates: start: 20150719, end: 20150725
  3. PREDNISONE. [Suspect]
     Active Substance: PREDNISONE
     Indication: MULTIPLE SCLEROSIS
     Dosage: 60 MILLIGRAM DAILY; 60 MG PER DAY AND THEN REDUCED
     Route: 064
     Dates: start: 20150719
  4. CLEXANE [Suspect]
     Active Substance: ENOXAPARIN SODIUM
     Dosage: 40 MILLIGRAM DAILY; START AND STOP DATES UNKNOWN.
     Route: 064
     Dates: start: 2015
  5. CALCIUM D [Concomitant]
     Active Substance: CALCIUM\VITAMIN D
     Route: 064
  6. SOLU-MEDROL [Suspect]
     Active Substance: METHYLPREDNISOLONE SODIUM SUCCINATE
     Indication: MULTIPLE SCLEROSIS
     Dosage: 1000 MILLIGRAM DAILY;
     Route: 064
     Dates: start: 20150721, end: 20150721
  7. NEXIUM [Suspect]
     Active Substance: ESOMEPRAZOLE MAGNESIUM
     Dosage: 40 MILLIGRAM DAILY; START AND STOP DATES UNKNOWN.
     Route: 064
     Dates: start: 2014

REACTIONS (5)
  - Exposure during pregnancy [Recovered/Resolved]
  - Cardiac murmur [Unknown]
  - Premature baby [Recovered/Resolved]
  - Conjunctivitis [Recovered/Resolved]
  - Caesarean section [Unknown]

NARRATIVE: CASE EVENT DATE: 201412
